FAERS Safety Report 20721730 (Version 1)
Quarter: 2022Q2

REPORT INFORMATION
  Report Type: Spontaneous
  Country: BR (occurrence: BR)
  Receive Date: 20220418
  Receipt Date: 20220418
  Transmission Date: 20220721
  Serious: No
  Sender: FDA-Public Use
  Company Number: BR-ORGANON-O2204BRA001105

PATIENT
  Sex: Female

DRUGS (1)
  1. ETONOGESTREL [Suspect]
     Active Substance: ETONOGESTREL
     Dosage: 1 IMPLANT
     Route: 059
     Dates: start: 20220124

REACTIONS (5)
  - Impaired healing [Unknown]
  - Wound [Unknown]
  - Implant site haemorrhage [Unknown]
  - Vaginal haemorrhage [Unknown]
  - Implant site erythema [Unknown]

NARRATIVE: CASE EVENT DATE: 20220329
